FAERS Safety Report 7033532-0 (Version None)
Quarter: 2010Q4

REPORT INFORMATION
  Report Type: 
  Country: None (occurrence: None)
  Receive Date: 20101007
  Receipt Date: 20100923
  Transmission Date: 20110411
  Serious: Yes (Other)
  Sender: FDA-Public Use
  Company Number: PHHY2010US64092

PATIENT
  Sex: Male

DRUGS (5)
  1. DIOVAN [Suspect]
     Dosage: 80 MG, UNK
  2. NASACORT [Suspect]
  3. AFRINOL [Suspect]
  4. FLOMAX [Concomitant]
  5. FISH OIL [Concomitant]

REACTIONS (4)
  - CEREBROVASCULAR ACCIDENT [None]
  - DRY SKIN [None]
  - DRY THROAT [None]
  - OROPHARYNGEAL PAIN [None]
